FAERS Safety Report 7250328-5 (Version None)
Quarter: 2011Q1

REPORT INFORMATION
  Report Type: 
  Country: None (occurrence: None)
  Receive Date: 20110128
  Receipt Date: 20110124
  Transmission Date: 20110831
  Serious: Yes (Life-Threatening)
  Sender: FDA-Public Use
  Company Number: FR-ASTRAZENECA-2011SE04227

PATIENT
  Age: 29561 Day
  Sex: Female

DRUGS (10)
  1. NEXIUM [Suspect]
     Route: 048
  2. SPIRIVA [Concomitant]
  3. PROCORALAN [Suspect]
     Route: 048
     Dates: start: 20101101, end: 20101207
  4. CORDARONE [Suspect]
     Route: 048
     Dates: end: 20101101
  5. SYMBICORT [Concomitant]
     Route: 055
  6. ASPIRIN [Concomitant]
  7. PLAVIX [Concomitant]
  8. PROCORALAN [Suspect]
     Route: 048
     Dates: start: 20100901
  9. CARDENSIEL [Suspect]
     Route: 048
     Dates: start: 20101101, end: 20101207
  10. ISUPREL [Concomitant]

REACTIONS (2)
  - SINUS BRADYCARDIA [None]
  - TORSADE DE POINTES [None]
